FAERS Safety Report 6747911-X (Version None)
Quarter: 2010Q2

REPORT INFORMATION
  Report Type: 
  Country: None (occurrence: None)
  Receive Date: 20100528
  Receipt Date: 20100517
  Transmission Date: 20101027
  Serious: Yes (Life-Threatening)
  Sender: FDA-Public Use
  Company Number: US-BAUSCH-2010BL002588

PATIENT
  Age: 40 Year
  Sex: Female
  Weight: 74 kg

DRUGS (3)
  1. LOTEMAX EYE DROPS SUSPENSION [Suspect]
     Indication: CONJUNCTIVITIS ALLERGIC
     Route: 047
     Dates: start: 20100514, end: 20100514
  2. MULTI-VITAMINS [Concomitant]
  3. GLUCOPHAGE [Concomitant]
     Indication: OVARIAN CYST

REACTIONS (7)
  - ANAPHYLACTIC SHOCK [None]
  - EYE PRURITUS [None]
  - EYELID OEDEMA [None]
  - LACRIMATION INCREASED [None]
  - NASAL CONGESTION [None]
  - RHINORRHOEA [None]
  - SNEEZING [None]
